FAERS Safety Report 16116453 (Version 1)
Quarter: 2019Q1

REPORT INFORMATION
  Report Type: Spontaneous
  Country: NL (occurrence: NL)
  Receive Date: 20190326
  Receipt Date: 20190326
  Transmission Date: 20190418
  Serious: Yes (Death, Hospitalization, Other)
  Sender: FDA-Public Use
  Company Number: NL-AUROBINDO-AUR-APL-2019-015741

PATIENT

DRUGS (1)
  1. PREDNISONE. [Suspect]
     Active Substance: PREDNISONE
     Indication: POLYMYALGIA RHEUMATICA
     Dosage: UNK
     Route: 065
     Dates: start: 2009

REACTIONS (7)
  - Sepsis [Fatal]
  - Cerebral infarction [Unknown]
  - Meningitis listeria [Fatal]
  - Altered state of consciousness [Unknown]
  - Respiratory failure [Fatal]
  - Brain abscess [Unknown]
  - CNS ventriculitis [Unknown]

NARRATIVE: CASE EVENT DATE: 2009
